FAERS Safety Report 10611552 (Version 1)
Quarter: 2014Q4

REPORT INFORMATION
  Report Type: Report from Study
  Country: US (occurrence: US)
  Receive Date: 20141126
  Receipt Date: 20141126
  Transmission Date: 20150529
  Serious: Yes (Other)
  Sender: FDA-Public Use
  Company Number: US-TEVA-524523USA

PATIENT
  Age: 41 Year
  Sex: Male
  Weight: 75 kg

DRUGS (4)
  1. FLUOROURACIL. [Suspect]
     Active Substance: FLUOROURACIL
     Indication: ADENOCARCINOMA OF COLON
     Dosage: IVP ON DAY 1 FOLLOWED BY 2400 MG/M2 IV OVER 46-48 HOURS ON DAY 1
     Route: 042
     Dates: start: 20120625
  2. CALCIUM FOLINATE [Suspect]
     Active Substance: LEUCOVORIN CALCIUM
     Indication: PRODUCT USED FOR UNKNOWN INDICATION
     Dosage: 400 MG/M2 DAILY; TOTAL DOSE ADMINISTERED THIS COURSE WAS 765MG
     Dates: start: 20140625
  3. CELECOXIB. [Suspect]
     Active Substance: CELECOXIB
     Dosage: 400 MILLIGRAM DAILY; STARTING ON DAY 1 OF CYCLE 2
     Route: 048
  4. ELOXATIN [Suspect]
     Active Substance: OXALIPLATIN
     Dosage: OVER 2 HOURS ON DAY 1
     Route: 042

REACTIONS (1)
  - Embolism [Not Recovered/Not Resolved]

NARRATIVE: CASE EVENT DATE: 20140715
